FAERS Safety Report 8929486 (Version 3)
Quarter: 2012Q4

REPORT INFORMATION
  Report Type: 
  Country: SE (occurrence: SE)
  Receive Date: 20121128
  Receipt Date: 20121226
  Transmission Date: 20130627
  Serious: Yes (Hospitalization)
  Sender: FDA-Public Use
  Company Number: SE-JNJFOC-20121109713

PATIENT
  Age: 21 Year
  Sex: Female

DRUGS (5)
  1. SIMPONI [Suspect]
     Indication: PSORIATIC ARTHROPATHY
     Route: 058
     Dates: start: 20101221, end: 20110818
  2. SALAZOPYRIN [Suspect]
     Indication: PSORIATIC ARTHROPATHY
     Dosage: Strength: 500 mg
     Route: 048
     Dates: start: 20100218, end: 20110818
  3. METHOTREXATE [Suspect]
     Indication: PSORIATIC ARTHROPATHY
     Route: 065
     Dates: start: 20101221, end: 20110818
  4. METHOTREXATE [Suspect]
     Indication: PSORIATIC ARTHROPATHY
     Route: 065
     Dates: start: 20110615, end: 20110818
  5. ENBREL [Concomitant]
     Indication: PSORIATIC ARTHROPATHY
     Route: 065
     Dates: start: 20100927, end: 20111221

REACTIONS (2)
  - Bacterial infection [Unknown]
  - Otitis media [Unknown]
